FAERS Safety Report 4292802-X (Version None)
Quarter: 2004Q1

REPORT INFORMATION
  Report Type: 
  Country: None (occurrence: None)
  Receive Date: 20040210
  Receipt Date: 20040128
  Transmission Date: 20041129
  Serious: Yes (Death, Hospitalization)
  Sender: FDA-Public Use
  Company Number: 8005123

PATIENT
  Age: 25 Year
  Sex: Female

DRUGS (8)
  1. KEPPRA [Suspect]
     Indication: EPILEPSY
     Dosage: 500 MG 2/D PO
     Route: 048
     Dates: start: 20031008, end: 20031001
  2. KEPPRA [Suspect]
     Indication: EPILEPSY
     Dosage: 1500 MG /D PO
     Route: 048
     Dates: start: 20031001, end: 20031001
  3. KEPPRA [Suspect]
     Indication: EPILEPSY
     Dosage: 1000 MG 2/D PO
     Route: 048
     Dates: start: 20031001, end: 20031021
  4. LAMICTAL [Concomitant]
  5. TEGRETOL [Concomitant]
  6. PHENYTOIN [Concomitant]
  7. CLARITIN [Concomitant]
  8. STESOLID [Concomitant]

REACTIONS (8)
  - BRADYCARDIA [None]
  - CARDIAC ARREST [None]
  - CIRCULATORY COLLAPSE [None]
  - CONDITION AGGRAVATED [None]
  - CONVULSION [None]
  - HYPERTENSION [None]
  - OXYGEN SATURATION DECREASED [None]
  - STATUS EPILEPTICUS [None]
